FAERS Safety Report 5375529-2 (Version None)
Quarter: 2007Q2

REPORT INFORMATION
  Report Type: 
  Country: None (occurrence: None)
  Receive Date: 20070629
  Receipt Date: 20070622
  Transmission Date: 20071010
  Serious: Yes (Other)
  Sender: FDA-Public Use
  Company Number: DE-GENENTECH-243440

PATIENT
  Age: 58 Year
  Sex: Female

DRUGS (2)
  1. LUCENTIS [Suspect]
     Indication: MACULAR DEGENERATION
     Dosage: UNK, SINGLE
     Route: 031
  2. CORTISONE ACETATE [Suspect]
     Indication: HYPERSENSITIVITY
     Route: 030

REACTIONS (1)
  - IMMUNOSUPPRESSION [None]
